FAERS Safety Report 4533455-2 (Version None)
Quarter: 2004Q4

REPORT INFORMATION
  Report Type: 
  Country: None (occurrence: None)
  Receive Date: 20041210
  Receipt Date: 20031114
  Transmission Date: 20050328
  Serious: Yes (Hospitalization)
  Sender: FDA-Public Use
  Company Number: RS004011-USA

PATIENT
  Age: 28 Year
  Sex: Male

DRUGS (1)
  1. ACIPHEX [Suspect]
     Dosage: 20 MG, ORAL
     Route: 048

REACTIONS (1)
  - RHABDOMYOLYSIS [None]
